FAERS Safety Report 16434335 (Version 6)
Quarter: 2021Q3

REPORT INFORMATION
  Report Type: Spontaneous
  Country: JP (occurrence: JP)
  Receive Date: 20190614
  Receipt Date: 20210928
  Transmission Date: 20211014
  Serious: Yes (Other)
  Sender: FDA-Public Use
  Company Number: JP-UCBSA-2019025634

PATIENT
  Age: 35 Year
  Sex: Female
  Weight: 60 kg

DRUGS (32)
  1. XYZAL [Suspect]
     Active Substance: LEVOCETIRIZINE DIHYDROCHLORIDE
     Indication: ASTHMA PROPHYLAXIS
     Dosage: UNK UNK, 1D
     Route: 048
  2. FLUTIFORM [Suspect]
     Active Substance: FLUTICASONE PROPIONATE\FORMOTEROL FUMARATE
     Dosage: 2 INHALATIONS/DAY, 0?38TH WEEK
  3. MEPTIN AIR [Suspect]
     Active Substance: PROCATEROL HYDROCHLORIDE
     Indication: ASTHMA PROPHYLAXIS
     Dosage: UNK ?G, UNK
     Route: 055
  4. PREDONINE [Suspect]
     Active Substance: PREDNISOLONE
     Dosage: 3 MG, 1D
     Route: 048
     Dates: start: 20181105, end: 20181202
  5. PREDONINE [Suspect]
     Active Substance: PREDNISOLONE
     Dosage: 2 MG, 1D
     Route: 048
     Dates: start: 20181203, end: 20190128
  6. ALFACALCIDOL [Concomitant]
     Active Substance: ALFACALCIDOL
     Indication: OSTEOPOROSIS PROPHYLAXIS
     Dosage: 1 UNK, UNK
  7. SPIRONOLACTONE. [Concomitant]
     Active Substance: SPIRONOLACTONE
     Indication: PRODUCT USED FOR UNKNOWN INDICATION
     Dosage: 12.5 MG/DAY, 0?8TH WEEK
  8. BENLYSTA [Suspect]
     Active Substance: BELIMUMAB
     Indication: SYSTEMIC LUPUS ERYTHEMATOSUS
     Dosage: 200 MG, WE (200 MG EVERY WEEK, 2 TIME IN TOTAL)
     Route: 058
     Dates: start: 20180904, end: 20180912
  9. FLUTIFORM [Suspect]
     Active Substance: FLUTICASONE PROPIONATE\FORMOTEROL FUMARATE
     Indication: ASTHMA PROPHYLAXIS
     Dosage: UNK ?G, UNK
     Route: 055
  10. PREDONINE [Suspect]
     Active Substance: PREDNISOLONE
     Dosage: 1 MG, 1D
     Route: 048
     Dates: start: 20190129
  11. AIMIX [Concomitant]
     Active Substance: AMLODIPINE BESYLATE\IRBESARTAN
     Indication: HYPERTENSION
     Dosage: UNK UNK, 1D
  12. VITANEURIN [Concomitant]
     Indication: PROPHYLAXIS
     Dosage: UNK
  13. URSO [Concomitant]
     Active Substance: URSODIOL
     Indication: ANTIVIRAL PROPHYLAXIS
     Dosage: UNK
  14. NIFEDIPINE. [Concomitant]
     Active Substance: NIFEDIPINE
     Indication: PRODUCT USED FOR UNKNOWN INDICATION
     Dosage: 20 MG/DAY, 0?8TH WEEK
  15. BENLYSTA [Suspect]
     Active Substance: BELIMUMAB
     Dosage: 200 MG/WEEK , 0?6TH WEEK
     Route: 058
     Dates: start: 20190225, end: 20190521
  16. PREDONINE [Suspect]
     Active Substance: PREDNISOLONE
     Indication: SYSTEMIC LUPUS ERYTHEMATOSUS
     Dosage: 10 MG, 1D
     Route: 048
     Dates: start: 20180904, end: 20180929
  17. ONETRAM [Concomitant]
     Active Substance: TRAMADOL HYDROCHLORIDE
     Indication: SYSTEMIC LUPUS ERYTHEMATOSUS
     Dosage: UNK
  18. MUCODYNE [Concomitant]
     Active Substance: CARBOCYSTEINE
     Indication: ASTHMA PROPHYLAXIS
     Dosage: UNK
  19. CYCLOPHOSPHAMIDE. [Concomitant]
     Active Substance: CYCLOPHOSPHAMIDE
     Indication: SYSTEMIC LUPUS ERYTHEMATOSUS
     Dosage: UNK
  20. PREDONINE [Suspect]
     Active Substance: PREDNISOLONE
     Dosage: 5 MG, 1D
     Route: 048
     Dates: start: 20180930, end: 20181104
  21. NEXIUM [Concomitant]
     Active Substance: ESOMEPRAZOLE MAGNESIUM
     Indication: GASTROOESOPHAGEAL REFLUX DISEASE
     Dosage: UNK
  22. KIPRES [Concomitant]
     Active Substance: MONTELUKAST SODIUM
     Indication: ASTHMA PROPHYLAXIS
     Dosage: UNK
  23. LOXONIN [Concomitant]
     Active Substance: LOXOPROFEN SODIUM
     Indication: PRODUCT USED FOR UNKNOWN INDICATION
     Dosage: UNK
  24. PREDONINE [Suspect]
     Active Substance: PREDNISOLONE
     Dosage: 1 MG/DAY, 0?38TH WEEK
  25. AMBROXOL HYDROCHLORIDE [Concomitant]
     Active Substance: AMBROXOL HYDROCHLORIDE
     Indication: ASTHMA PROPHYLAXIS
     Dosage: UNK
  26. KIPRES [Concomitant]
     Active Substance: MONTELUKAST SODIUM
     Dosage: 10 MG/DAY,0?38TH WEEK
     Dates: start: 20180904, end: 20180920
  27. TAKECAB [Concomitant]
     Active Substance: VONOPRAZAN FUMARATE
     Indication: GASTROOESOPHAGEAL REFLUX PROPHYLAXIS
     Dosage: UNK
  28. CALONAL [Concomitant]
     Active Substance: ACETAMINOPHEN
     Indication: PRODUCT USED FOR UNKNOWN INDICATION
     Dosage: 900 MG/DAY, 8?9TH WEEK
     Dates: start: 20190618, end: 20190702
  29. AMBROXOL HYDROCHLORIDE [Concomitant]
     Active Substance: AMBROXOL HYDROCHLORIDE
     Dosage: 45 MG/DAY, 0?38TH WEEK
  30. HIRUDOID [Concomitant]
     Active Substance: GLYCOSAMINOGLYCANS
     Indication: DRY SKIN PROPHYLAXIS
     Dosage: UNK
  31. ASPARA POTASSIUM [Concomitant]
     Active Substance: POTASSIUM ASPARTATE
     Indication: HYPOKALAEMIA
     Dosage: UNK
  32. PRIMPERAN [Concomitant]
     Active Substance: METOCLOPRAMIDE HYDROCHLORIDE
     Indication: PRODUCT USED FOR UNKNOWN INDICATION
     Dosage: 15 MG/DAY, ONLY 8TH WEEK
     Dates: start: 20190618, end: 20190624

REACTIONS (6)
  - Asthma [Recovered/Resolved]
  - Maternal exposure during pregnancy [Unknown]
  - Oesophageal candidiasis [Recovered/Resolved]
  - Laryngopharyngitis [Recovered/Resolved]
  - Viral upper respiratory tract infection [Recovered/Resolved]
  - Gastrooesophageal reflux disease [Recovering/Resolving]

NARRATIVE: CASE EVENT DATE: 20180918
